FAERS Safety Report 5897747-7 (Version None)
Quarter: 2008Q3

REPORT INFORMATION
  Report Type: 
  Country: None (occurrence: None)
  Receive Date: 20080925
  Receipt Date: 20080917
  Transmission Date: 20090109
  Serious: Yes (Hospitalization)
  Sender: FDA-Public Use
  Company Number: PHNU2008DE01339

PATIENT
  Sex: Male

DRUGS (2)
  1. PANTOZOL [Interacting]
     Indication: ABDOMINAL DISCOMFORT
     Dosage: 40 MG, BID
     Route: 048
     Dates: start: 20080201
  2. GLEEVEC [Suspect]
     Indication: CHRONIC MYELOID LEUKAEMIA
     Dosage: 400 MG, QD
     Route: 048
     Dates: start: 20010101

REACTIONS (6)
  - ABDOMINAL PAIN UPPER [None]
  - ANAEMIA [None]
  - DRUG INTERACTION [None]
  - FATIGUE [None]
  - HAEMOGLOBIN DECREASED [None]
  - LEUKOPENIA [None]
